FAERS Safety Report 21157650 (Version 1)
Quarter: 2022Q3

REPORT INFORMATION
  Report Type: Spontaneous
  Country: US (occurrence: None)
  Receive Date: 20220801
  Receipt Date: 20220801
  Transmission Date: 20221026
  Serious: Yes (Hospitalization)
  Sender: FDA-Public Use
  Company Number: None

PATIENT
  Age: 6 Year

DRUGS (9)
  1. ALBUTEROL [Suspect]
     Active Substance: ALBUTEROL
     Indication: Respiratory failure
     Dosage: 2.5 MG/3ML 0.083%  INHALATION??NEBULIZE AND INHALE 1 VIAL (3 ML) TWICE DAILY?
     Route: 055
     Dates: start: 20220408
  2. BUDESONIDE [Concomitant]
     Active Substance: BUDESONIDE
  3. CHILDRENS LORATADINE [Concomitant]
     Active Substance: LORATADINE
  4. CUVPOSA [Concomitant]
     Active Substance: GLYCOPYRROLATE
  5. FAMOTIDINE [Concomitant]
     Active Substance: FAMOTIDINE
  6. IPRATROPIUM BROMIDE [Concomitant]
     Active Substance: IPRATROPIUM BROMIDE
  7. POLYETHYLENE GLYCOL 3350 [Concomitant]
     Active Substance: POLYETHYLENE GLYCOL 3350
  8. SODIUM CHLORIDE [Concomitant]
     Active Substance: SODIUM CHLORIDE
  9. STERILE WATER IRRIGATION [Concomitant]

REACTIONS (1)
  - Gastrointestinal disorder [None]

NARRATIVE: CASE EVENT DATE: 20220601
